FAERS Safety Report 9834775 (Version 1)
Quarter: 2014Q1

REPORT INFORMATION
  Report Type: Spontaneous
  Country: US (occurrence: US)
  Receive Date: 20140122
  Receipt Date: 20140122
  Transmission Date: 20141002
  Serious: No
  Sender: FDA-Public Use
  Company Number: US-009507513-1401USA007858

PATIENT
  Sex: Male

DRUGS (1)
  1. LOTRIMIN AF JOCK ITCH [Suspect]
     Indication: PRODUCT USED FOR UNKNOWN INDICATION
     Dosage: UNK, UNKNOWN
     Route: 061

REACTIONS (3)
  - Burning sensation [Unknown]
  - Skin lesion [Unknown]
  - Condition aggravated [Unknown]
